FAERS Safety Report 20826370 (Version 1)
Quarter: 2022Q2

REPORT INFORMATION
  Report Type: Spontaneous
  Country: CN (occurrence: CN)
  Receive Date: 20220513
  Receipt Date: 20220513
  Transmission Date: 20220721
  Serious: Yes (Other)
  Sender: FDA-Public Use
  Company Number: CN-ABBVIE-22K-035-4336714-00

PATIENT

DRUGS (4)
  1. LOPINAVIR\RITONAVIR [Suspect]
     Active Substance: LOPINAVIR\RITONAVIR
     Indication: AIDS related complication
     Dosage: LOPINAVIR 200 MG, RITONAVIR 50 MG
     Route: 048
  2. LOPINAVIR\RITONAVIR [Suspect]
     Active Substance: LOPINAVIR\RITONAVIR
     Indication: Tuberculosis
  3. RIFABUTIN [Suspect]
     Active Substance: RIFABUTIN
     Indication: AIDS related complication
     Route: 048
  4. RIFABUTIN [Suspect]
     Active Substance: RIFABUTIN
     Indication: Tuberculosis

REACTIONS (1)
  - Hepatic failure [Unknown]
